FAERS Safety Report 5868110-X (Version None)
Quarter: 2008Q3

REPORT INFORMATION
  Report Type: 
  Country: None (occurrence: None)
  Receive Date: 20080902
  Receipt Date: 20080425
  Transmission Date: 20090109
  Serious: No
  Sender: FDA-Public Use
  Company Number: US-ABBOTT-08P-163-0449162-00

PATIENT
  Sex: Male
  Weight: 108.05 kg

DRUGS (2)
  1. DEPAKOTE ER [Suspect]
     Indication: MIGRAINE
     Route: 048
     Dates: start: 20071101, end: 20080426
  2. DEPAKOTE ER [Suspect]
     Route: 048
     Dates: start: 20080426

REACTIONS (3)
  - FATIGUE [None]
  - MIGRAINE [None]
  - WEIGHT INCREASED [None]
